FAERS Safety Report 9424556 (Version 1)
Quarter: 2013Q3

REPORT INFORMATION
  Report Type: Report from Study
  Country: US (occurrence: US)
  Receive Date: 20130729
  Receipt Date: 20130729
  Transmission Date: 20140515
  Serious: Yes (Congenital Anomaly)
  Sender: FDA-Public Use
  Company Number: US-MYLANLABS-2013S1016273

PATIENT
  Sex: 0

DRUGS (4)
  1. LAMIVUDINE + ZIDOVUDINE [Suspect]
     Route: 064
  2. LOPINAVIR W/RITONAVIR [Suspect]
     Route: 064
  3. ZIDOVUDINE [Suspect]
     Route: 064
  4. LAMIVUDINE [Suspect]
     Route: 064

REACTIONS (3)
  - Arnold-Chiari malformation [Not Recovered/Not Resolved]
  - Congenital central nervous system anomaly [Not Recovered/Not Resolved]
  - Exposure during pregnancy [Recovered/Resolved]
